FAERS Safety Report 14187811 (Version 2)
Quarter: 2017Q4

REPORT INFORMATION
  Report Type: Spontaneous
  Country: BR (occurrence: BR)
  Receive Date: 20171114
  Receipt Date: 20171207
  Transmission Date: 20180321
  Serious: Yes (Hospitalization, Other)
  Sender: FDA-Public Use
  Company Number: BR-JNJFOC-20171107023

PATIENT
  Sex: Male

DRUGS (1)
  1. HALDOL DECANOATO [Suspect]
     Active Substance: HALOPERIDOL DECANOATE
     Indication: SCHIZOPHRENIA
     Route: 065

REACTIONS (15)
  - Hospitalisation [Unknown]
  - Obesity [Unknown]
  - Blood triglycerides increased [Unknown]
  - Blood cholesterol increased [Unknown]
  - Tremor [Unknown]
  - Malaise [Unknown]
  - Lipomatosis [Unknown]
  - Hypertension [Unknown]
  - Furuncle [Unknown]
  - Diabetes mellitus [Unknown]
  - Somnolence [Not Recovered/Not Resolved]
  - Tachycardia [Unknown]
  - Hypoglycaemia [Unknown]
  - Sensory disturbance [Unknown]
  - Hallucination, auditory [Unknown]
